FAERS Safety Report 6671588-5 (Version None)
Quarter: 2010Q2

REPORT INFORMATION
  Report Type: 
  Country: None (occurrence: None)
  Receive Date: 20100406
  Receipt Date: 20100406
  Transmission Date: 20101027
  Serious: Yes (Life-Threatening)
  Sender: FDA-Public Use
  Company Number: None

PATIENT
  Age: 23 Year
  Sex: Female
  Weight: 45.3597 kg

DRUGS (5)
  1. RESTASIS [Suspect]
     Indication: DRY EYE
     Dates: start: 20100101, end: 20100323
  2. TOPAMAX [Concomitant]
  3. ALEVE (CAPLET) [Concomitant]
  4. VIT B2 [Concomitant]
  5. RIBOFLAVIN TAB [Concomitant]

REACTIONS (3)
  - ANGIOEDEMA [None]
  - LARYNGEAL OEDEMA [None]
  - URTICARIA [None]
